FAERS Safety Report 9232072 (Version 2)
Quarter: 2013Q2

REPORT INFORMATION
  Report Type: Spontaneous
  Country: JP (occurrence: JP)
  Receive Date: 20130415
  Receipt Date: 20130430
  Transmission Date: 20140414
  Serious: Yes (Death)
  Sender: FDA-Public Use
  Company Number: JP-BAYER-201011051BYL

PATIENT
  Age: 73 Year
  Sex: Male
  Weight: 51 kg

DRUGS (8)
  1. NEXAVAR [Suspect]
     Indication: HEPATOCELLULAR CARCINOMA
     Dosage: DAILY DOSE 800 MG
     Route: 048
     Dates: start: 20100224, end: 20100316
  2. NEXAVAR [Suspect]
     Indication: HEPATOCELLULAR CARCINOMA
     Dosage: DAILY DOSE 600 MG
     Route: 048
     Dates: start: 20100316, end: 20100415
  3. NEXAVAR [Suspect]
     Indication: HEPATOCELLULAR CARCINOMA
     Dosage: DAILY DOSE 400 MG
     Route: 048
     Dates: start: 20100506, end: 20100603
  4. NEXAVAR [Suspect]
     Indication: HEPATOCELLULAR CARCINOMA
     Dosage: DAILY DOSE 400 MG
     Route: 048
     Dates: start: 20100722, end: 20100819
  5. NEXAVAR [Suspect]
     Indication: HEPATOCELLULAR CARCINOMA
     Dosage: DAILY DOSE 400 MG
     Route: 048
     Dates: start: 20100820, end: 20120502
  6. GASTROM [Concomitant]
     Dosage: DAILY DOSE 3 G
     Route: 048
  7. TAKEPRON [Concomitant]
     Dosage: DAILY DOSE 30 MG
     Route: 048
  8. RHYTHMY [Concomitant]
     Dosage: DAILY DOSE 1 MG
     Route: 048

REACTIONS (8)
  - Hepatocellular carcinoma [Fatal]
  - Jaundice cholestatic [Fatal]
  - Amylase increased [Recovering/Resolving]
  - Liver function test abnormal [Not Recovered/Not Resolved]
  - Abdominal pain [Recovering/Resolving]
  - Cholangitis [Fatal]
  - Palmar-plantar erythrodysaesthesia syndrome [None]
  - Diarrhoea [None]
